FAERS Safety Report 8197482-9 (Version None)
Quarter: 2012Q1

REPORT INFORMATION
  Report Type: 
  Country: None (occurrence: None)
  Receive Date: 20120309
  Receipt Date: 20120209
  Transmission Date: 20120608
  Serious: Yes (Death, Other)
  Sender: FDA-Public Use
  Company Number: US-ROCHE-1046580

PATIENT

DRUGS (4)
  1. AVASTIN [Suspect]
     Indication: COLORECTAL CANCER
     Dosage: ON DAY 1
     Route: 042
  2. IRINOTECAN HCL [Suspect]
     Indication: COLORECTAL CANCER
     Dosage: ON DAY 1
     Route: 042
  3. XELODA [Suspect]
     Indication: COLORECTAL CANCER
     Dosage: FOR DAY 2 TO DAY 15
     Route: 048
  4. OXALIPLATIN [Suspect]
     Indication: COLORECTAL CANCER
     Route: 042

REACTIONS (12)
  - FEBRILE NEUTROPENIA [None]
  - FATIGUE [None]
  - EMBOLISM [None]
  - LEUKOPENIA [None]
  - DEHYDRATION [None]
  - VOMITING [None]
  - MYOCARDIAL INFARCTION [None]
  - NEUTROPENIA [None]
  - NAUSEA [None]
  - COLITIS [None]
  - DIARRHOEA [None]
  - THROMBOCYTOPENIA [None]
